FAERS Safety Report 5924639-7 (Version None)
Quarter: 2008Q3

REPORT INFORMATION
  Report Type: 
  Country: None (occurrence: None)
  Receive Date: 20080909
  Receipt Date: 20080625
  Transmission Date: 20090109
  Serious: Yes (Death)
  Sender: FDA-Public Use
  Company Number: 163-20785-08021697

PATIENT
  Age: 88 Year
  Sex: Female

DRUGS (1)
  1. THALOMID [Suspect]
     Indication: GAMMOPATHY
     Dosage: 50 MG, 1 IN 1 D, ORAL
     Dates: start: 20060601, end: 20070801

REACTIONS (3)
  - MULTIPLE MYELOMA [None]
  - NEOPLASM PROGRESSION [None]
  - RENAL FAILURE [None]
